FAERS Safety Report 7807493-8 (Version None)
Quarter: 2011Q4

REPORT INFORMATION
  Report Type: 
  Country: None (occurrence: None)
  Receive Date: 20111011
  Receipt Date: 20111005
  Transmission Date: 20120403
  Serious: Yes (Death)
  Sender: FDA-Public Use
  Company Number: US-GLAXOSMITHKLINE-A0724592A

PATIENT
  Age: 71 Year
  Sex: Male
  Weight: 80.9 kg

DRUGS (6)
  1. ZESTRIL [Concomitant]
  2. TRICOR [Concomitant]
  3. GLUCOPHAGE [Concomitant]
  4. AVANDIA [Suspect]
     Indication: DIABETES MELLITUS
     Dosage: 4MG PER DAY
     Route: 048
     Dates: start: 19990901, end: 20060101
  5. AMARYL [Concomitant]
  6. LIPITOR [Concomitant]

REACTIONS (2)
  - MYOCARDIAL INFARCTION [None]
  - CORONARY ARTERY DISEASE [None]
